FAERS Safety Report 22623182 (Version 3)
Quarter: 2024Q2

REPORT INFORMATION
  Report Type: Report from Study
  Country: US (occurrence: US)
  Receive Date: 20230621
  Receipt Date: 20240604
  Transmission Date: 20240715
  Serious: Yes (Other)
  Sender: FDA-Public Use
  Company Number: US-ABBVIE-5296598

PATIENT
  Sex: Male

DRUGS (3)
  1. RINVOQ [Suspect]
     Active Substance: UPADACITINIB
     Indication: Dermatitis atopic
     Dosage: LAST ADMIN DATE: AUG 2022
     Route: 048
     Dates: start: 20220801
  2. RINVOQ [Suspect]
     Active Substance: UPADACITINIB
     Indication: Dermatitis atopic
     Route: 048
     Dates: start: 20220913
  3. RINVOQ [Suspect]
     Active Substance: UPADACITINIB
     Indication: Dermatitis atopic
     Dosage: LAST ADMIN DATE-2022
     Route: 048
     Dates: start: 20220822

REACTIONS (8)
  - Squamous cell carcinoma of skin [Not Recovered/Not Resolved]
  - Erythema [Recovering/Resolving]
  - Fungal skin infection [Not Recovered/Not Resolved]
  - Inflammation [Not Recovered/Not Resolved]
  - Dermatitis atopic [Not Recovered/Not Resolved]
  - Erythema [Not Recovered/Not Resolved]
  - Skin exfoliation [Not Recovered/Not Resolved]
  - Blister [Recovering/Resolving]

NARRATIVE: CASE EVENT DATE: 20230101
